FAERS Safety Report 8890620 (Version 1)
Quarter: 2012Q4

REPORT INFORMATION
  Report Type: 
  Country: KR (occurrence: KR)
  Receive Date: 20121106
  Receipt Date: 20121106
  Transmission Date: 20130627
  Serious: Yes (Hospitalization, Other)
  Sender: FDA-Public Use
  Company Number: KR-WATSON-2012-18902

PATIENT
  Age: 22 Year
  Sex: Female

DRUGS (3)
  1. TACROLIMUS (UNKNOWN) [Suspect]
     Indication: HEART TRANSPLANT
     Dosage: 11 mg, daily
     Route: 065
  2. MYCOPHENOLATE MOFETIL (UNKNOWN) [Suspect]
     Indication: HEART TRANSPLANT
     Dosage: 250 mg, bid
     Route: 065
  3. CORTICOSTEROIDS [Suspect]
     Indication: HEART TRANSPLANT
     Route: 065

REACTIONS (3)
  - Diabetic ketoacidosis [Recovered/Resolved]
  - Febrile neutropenia [Recovered/Resolved]
  - Drug level above therapeutic [Recovered/Resolved]
